FAERS Safety Report 10006434 (Version 1)
Quarter: 2014Q1

REPORT INFORMATION
  Report Type: Report from Study
  Country: US (occurrence: US)
  Receive Date: 20140313
  Receipt Date: 20140313
  Transmission Date: 20141002
  Serious: Yes (Hospitalization)
  Sender: FDA-Public Use
  Company Number: US-B.I. PHARMACEUTICALS,INC./RIDGEFIELD-2014-BI-10065BI

PATIENT
  Age: 85 Year
  Sex: Female

DRUGS (9)
  1. DABIGATRAN [Suspect]
     Indication: ATRIAL FIBRILLATION
     Dosage: 75 MG
     Route: 048
     Dates: end: 20120509
  2. DABIGATRAN [Suspect]
     Dosage: 75 MG
     Route: 048
     Dates: start: 20120516
  3. CELEBREX [Concomitant]
     Dosage: 200 MG
     Route: 048
  4. TRAMADOL [Concomitant]
     Dosage: 50 MG
     Route: 048
  5. LISINOPRIL [Concomitant]
     Dosage: 5 MG
     Route: 048
  6. SERTRALINE HCL [Concomitant]
     Dosage: 50 MG
     Route: 048
  7. MULTIVITAMINS [Concomitant]
     Dosage: DOSE PER APPLICATION AND DAILY DOSE: 1 TAB
     Route: 048
     Dates: start: 20120509
  8. PROTONIX [Concomitant]
     Dosage: 40 MG
     Route: 048
     Dates: start: 20120509
  9. SANSICURE CREAM [Concomitant]
     Route: 065

REACTIONS (1)
  - Gastrointestinal haemorrhage [Unknown]
